FAERS Safety Report 15172206 (Version 2)
Quarter: 2019Q2

REPORT INFORMATION
  Report Type: Report from Study
  Country: GB (occurrence: GB)
  Receive Date: 20180720
  Receipt Date: 20190404
  Transmission Date: 20190711
  Serious: Yes (Other)
  Sender: FDA-Public Use
  Company Number: GB-PFIZER INC-2018038335

PATIENT
  Age: 55 Year
  Sex: Female

DRUGS (3)
  1. SOMATROPIN. [Concomitant]
     Active Substance: SOMATROPIN
     Dosage: UNK
     Route: 065
  2. METHOTREXATE SODIUM. [Suspect]
     Active Substance: METHOTREXATE SODIUM
     Dosage: UNK
     Route: 065
  3. ABATACEPT [Suspect]
     Active Substance: ABATACEPT
     Indication: RHEUMATOID ARTHRITIS
     Dosage: 125 MG, QWK
     Route: 058
     Dates: start: 20160706

REACTIONS (4)
  - Body temperature abnormal [Unknown]
  - Malaise [Unknown]
  - Full blood count decreased [Unknown]
  - Lower respiratory tract infection [Unknown]
